FAERS Safety Report 17431226 (Version 1)
Quarter: 2020Q1

REPORT INFORMATION
  Report Type: Spontaneous
  Country: KR (occurrence: KR)
  Receive Date: 20200218
  Receipt Date: 20200218
  Transmission Date: 20200409
  Serious: Yes (Other)
  Sender: FDA-Public Use
  Company Number: KR-NOVOPROD-712238

PATIENT
  Sex: Male

DRUGS (1)
  1. TRESIBA [Suspect]
     Active Substance: INSULIN DEGLUDEC
     Indication: DIABETES MELLITUS
     Dosage: 25 IU, BID (25-0-25IU, BREAKFAST AND DINNER)
     Route: 058

REACTIONS (2)
  - Inappropriate schedule of product administration [Unknown]
  - Cardiac disorder [Unknown]
